FAERS Safety Report 8505370-0 (Version None)
Quarter: 2012Q3

REPORT INFORMATION
  Report Type: 
  Country: None (occurrence: None)
  Receive Date: 20120712
  Receipt Date: 20120702
  Transmission Date: 20120928
  Serious: Yes (Hospitalization)
  Sender: FDA-Public Use
  Company Number: US-ELI_LILLY_AND_COMPANY-US201204003372

PATIENT
  Sex: Male
  Weight: 84.807 kg

DRUGS (13)
  1. CLOZEPAM [Concomitant]
     Dosage: 1 MG, PRN
  2. FENOFIBRATE [Concomitant]
     Dosage: 160 MG, UNK
  3. LISINOPRIL [Concomitant]
     Dosage: UNK
  4. SYMBICORT [Concomitant]
     Dosage: UNK
  5. COMBIVENT [Concomitant]
     Dosage: UNK, PRN
  6. JANUVIA [Concomitant]
     Dosage: 25 MG, UNK
  7. SIMVASTATIN [Concomitant]
     Dosage: UNK
  8. TRAMADOL HCL [Concomitant]
     Dosage: UNK
  9. FORTEO [Suspect]
     Indication: OSTEOPOROSIS
     Dosage: 20 UG, QD
     Route: 065
     Dates: start: 20120312
  10. GABAPENTIN [Concomitant]
     Dosage: 300 MG, BID
  11. GLIMEPIRIDE [Concomitant]
     Dosage: 2 MG, UNK
  12. METOPROLOL SUCCINATE [Concomitant]
     Dosage: UNK
  13. DOXAZOSIN MESYLATE [Concomitant]
     Dosage: 4 MG, EACH EVENING

REACTIONS (5)
  - DIZZINESS [None]
  - ABDOMINAL PAIN UPPER [None]
  - DIARRHOEA [None]
  - ASTHENIA [None]
  - ADVERSE EVENT [None]
